FAERS Safety Report 16774568 (Version 1)
Quarter: 2019Q3

REPORT INFORMATION
  Report Type: Spontaneous
  Country: DE (occurrence: DE)
  Receive Date: 20190905
  Receipt Date: 20190905
  Transmission Date: 20191005
  Serious: Yes (Hospitalization)
  Sender: FDA-Public Use
  Company Number: DE-TEVA-2019-DE-1102288

PATIENT
  Age: 67 Year
  Sex: Male

DRUGS (1)
  1. SILDENAFIL RATIOPHARM 25MG FILMTABLETTEN [Suspect]
     Active Substance: SILDENAFIL
     Route: 048

REACTIONS (3)
  - Seizure [Unknown]
  - Transient ischaemic attack [Unknown]
  - Amnesia [Unknown]
